FAERS Safety Report 8140280-2 (Version None)
Quarter: 2012Q1

REPORT INFORMATION
  Report Type: 
  Country: None (occurrence: None)
  Receive Date: 20120216
  Receipt Date: 20120209
  Transmission Date: 20120608
  Serious: Yes (Hospitalization)
  Sender: FDA-Public Use
  Company Number: US-VERTEX PHARMACEUTICALS INC.-AE-2011-003270

PATIENT
  Sex: Female

DRUGS (6)
  1. PEGASYS [Concomitant]
     Indication: HEPATITIS C
     Route: 058
  2. INCIVEK [Suspect]
     Indication: HEPATITIS C
     Route: 048
     Dates: start: 20110705, end: 20110927
  3. LISINOPRIL [Concomitant]
  4. RIBAVIRIN [Concomitant]
     Indication: HEPATITIS C
  5. HYDROCHLOROTHIAZIDE [Concomitant]
  6. LOVAZA [Concomitant]

REACTIONS (1)
  - BLOOD POTASSIUM DECREASED [None]
